FAERS Safety Report 13110641 (Version 2)
Quarter: 2017Q1

REPORT INFORMATION
  Report Type: Spontaneous
  Country: FR (occurrence: FR)
  Receive Date: 20170112
  Receipt Date: 20170120
  Transmission Date: 20170428
  Serious: Yes (Other)
  Sender: FDA-Public Use
  Company Number: FR-GUERBET LLC-1061961

PATIENT
  Age: 27 Year
  Sex: Female
  Weight: 50 kg

DRUGS (1)
  1. DOTAREM [Suspect]
     Active Substance: GADOTERATE MEGLUMINE
     Indication: NUCLEAR MAGNETIC RESONANCE IMAGING BRAIN
     Route: 042
     Dates: start: 20161229, end: 20161229

REACTIONS (9)
  - Choking sensation [Unknown]
  - Malaise [Unknown]
  - Nausea [Unknown]
  - Urticaria [Unknown]
  - Lip swelling [Unknown]
  - Tachycardia [Unknown]
  - Hypotonia [Unknown]
  - Vomiting [Unknown]
  - Hypotension [Unknown]

NARRATIVE: CASE EVENT DATE: 20161229
